FAERS Safety Report 9237285 (Version 1)
Quarter: 2013Q2

REPORT INFORMATION
  Report Type: Spontaneous
  Country: US (occurrence: US)
  Receive Date: 20130417
  Receipt Date: 20130417
  Transmission Date: 20140414
  Serious: No
  Sender: FDA-Public Use
  Company Number: US-ASTRAZENECA-2013SE19521

PATIENT
  Age: 520 Month
  Sex: Female
  Weight: 80.7 kg

DRUGS (28)
  1. SEROQUEL XR [Suspect]
     Indication: AGORAPHOBIA
     Route: 048
  2. SEROQUEL XR [Suspect]
     Indication: AGORAPHOBIA
     Route: 048
  3. KLONOPIN [Suspect]
     Indication: AGORAPHOBIA
     Route: 065
  4. VALIUM [Suspect]
     Indication: AGORAPHOBIA
     Route: 065
  5. PAXIL [Suspect]
     Indication: AGORAPHOBIA
     Route: 065
  6. PRISTIQ [Concomitant]
     Indication: AGORAPHOBIA
  7. PRISTIQ [Concomitant]
     Indication: AGORAPHOBIA
  8. PRISTIQ [Concomitant]
     Indication: AGORAPHOBIA
     Dates: start: 20130111
  9. PRISTIQ [Concomitant]
     Indication: AGORAPHOBIA
     Dosage: 100 MG IN MORNING, 50 MG IN AFTERNOON, 100 MG AT NIGHT
  10. XANAX [Concomitant]
  11. LITHIUM [Concomitant]
     Indication: AGORAPHOBIA
  12. ZOLOFT [Concomitant]
     Indication: AGORAPHOBIA
  13. PROZAC [Concomitant]
     Indication: AGORAPHOBIA
  14. LAMICTAL [Concomitant]
     Indication: AGORAPHOBIA
  15. WELLBUTRIN [Concomitant]
     Indication: AGORAPHOBIA
  16. ABILIFY [Concomitant]
     Indication: AGORAPHOBIA
  17. TOPAMAX [Concomitant]
     Indication: AGORAPHOBIA
  18. CELEXA [Concomitant]
     Indication: AGORAPHOBIA
  19. CYMBALTA [Concomitant]
     Indication: AGORAPHOBIA
  20. ANAFRANIL [Concomitant]
     Indication: AGORAPHOBIA
  21. IMIPRAMINE [Concomitant]
     Indication: AGORAPHOBIA
  22. TEGRETOL [Concomitant]
     Indication: AGORAPHOBIA
  23. LUVOX [Concomitant]
     Indication: AGORAPHOBIA
  24. DEPAKOTE [Concomitant]
     Indication: AGORAPHOBIA
  25. ADDERALL [Concomitant]
  26. ADDERALL [Concomitant]
  27. LEXAPRO [Concomitant]
  28. UNSPECIFIED MEDICATION [Concomitant]
     Indication: AGORAPHOBIA

REACTIONS (4)
  - Depression [Unknown]
  - Crying [Unknown]
  - Social avoidant behaviour [Unknown]
  - Drug ineffective [Unknown]
